FAERS Safety Report 7152396-8 (Version None)
Quarter: 2010Q4

REPORT INFORMATION
  Report Type: 
  Country: None (occurrence: None)
  Receive Date: 20101124
  Receipt Date: 20101115
  Transmission Date: 20110411
  Serious: Yes (Hospitalization, Other)
  Sender: FDA-Public Use
  Company Number: 009521

PATIENT
  Sex: Female
  Weight: 71 kg

DRUGS (6)
  1. KEPPRA [Suspect]
     Indication: EPILEPSY
     Dosage: SEE IMAGE, INTRAVENOUS DRIP
     Route: 041
     Dates: start: 20100216, end: 20100830
  2. KEPPRA [Suspect]
     Indication: EPILEPSY
     Dosage: SEE IMAGE, INTRAVENOUS DRIP
     Route: 041
     Dates: start: 20100323
  3. ZONEGRAN [Concomitant]
  4. TRILEPTAL [Concomitant]
  5. TARDYFERON [Concomitant]
  6. SPECIAFOLDINE [Concomitant]

REACTIONS (10)
  - AUTOMATISM [None]
  - CLONUS [None]
  - DRUG EXPOSURE DURING PREGNANCY [None]
  - EPILEPSY [None]
  - FOETAL GROWTH RESTRICTION [None]
  - PETIT MAL EPILEPSY [None]
  - PREGNANCY [None]
  - THREATENED LABOUR [None]
  - THROMBOCYTOPENIA [None]
  - TREATMENT NONCOMPLIANCE [None]
